FAERS Safety Report 9174903 (Version 1)
Quarter: 2013Q1

REPORT INFORMATION
  Report Type: Spontaneous
  Country: GB (occurrence: None)
  Receive Date: 20130318
  Receipt Date: 20130318
  Transmission Date: 20140127
  Serious: Yes (Hospitalization)
  Sender: FDA-Public Use
  Company Number: GB-JNJFOC-20121206665

PATIENT
  Age: 72 Year
  Sex: Male
  Weight: 78.5 kg

DRUGS (9)
  1. DECITABINE  (DECITABINE)  LYOPHILIZED  POWDER [Suspect]
     Indication: MYELODYSPLASTIC SYNDROME
     Dosage: CYCLE  1,  DAY  1  INTRAVENOUS?08/20/2012  -  STOPPED
     Route: 042
     Dates: start: 20120820
  2. ITRACONAZOLE  (ITRACONAZOLE) [Concomitant]
  3. ACICLOVIR  (ACICLOVIR) [Concomitant]
  4. ALFUZOSIN  (ALFUZOSIN) [Concomitant]
  5. ALLOPURINOL  (ALLOPURINOL) [Concomitant]
  6. AMILORIDE  HYDROCHLORIDE  (AMILORIDE  HYDROCHLORIDE) [Concomitant]
  7. BISOPROLOL  (BISOPROLOL) [Concomitant]
  8. COTRIMOXAZOLE [Concomitant]
  9. BENDROFLUMETHIAZIDE  (BENDROFLUMETHIAZIDE) [Concomitant]

REACTIONS (3)
  - Pyrexia [None]
  - Infection [None]
  - Respiratory tract infection fungal [None]
